FAERS Safety Report 10905157 (Version 9)
Quarter: 2020Q2

REPORT INFORMATION
  Report Type: Report from Study
  Country: US (occurrence: US)
  Receive Date: 20150311
  Receipt Date: 20200408
  Transmission Date: 20200713
  Serious: Yes (Hospitalization, Other)
  Sender: FDA-Public Use
  Company Number: US-SA-2014SA090397

PATIENT
  Age: 67 Year
  Sex: Female
  Weight: 40.3 kg

DRUGS (12)
  1. TERIFLUNOMIDE. [Suspect]
     Active Substance: TERIFLUNOMIDE
     Dosage: 7 MG,UNK
     Route: 048
     Dates: start: 20140701, end: 20140813
  2. TERIFLUNOMIDE. [Suspect]
     Active Substance: TERIFLUNOMIDE
     Dosage: 7 MG,QD
     Route: 048
     Dates: end: 20170515
  3. MEFENAMIC ACID. [Concomitant]
     Active Substance: MEFENAMIC ACID
     Indication: PAIN
     Dosage: UNK
  4. ATELVIA [Concomitant]
     Active Substance: RISEDRONATE SODIUM
  5. TERIFLUNOMIDE. [Suspect]
     Active Substance: TERIFLUNOMIDE
     Dosage: 7 MG, QOD
     Route: 048
     Dates: start: 20141001
  6. SYNTHROID [Concomitant]
     Active Substance: LEVOTHYROXINE SODIUM
     Dosage: UNK
     Dates: start: 20140215
  7. WELLBATRIN [Concomitant]
     Active Substance: BUPROPION HYDROCHLORIDE
     Dosage: UNK
     Dates: start: 20100615
  8. TERIFLUNOMIDE. [Suspect]
     Active Substance: TERIFLUNOMIDE
     Indication: RELAPSING-REMITTING MULTIPLE SCLEROSIS
     Dosage: 14 MG,QD
     Route: 048
  9. TERIFLUNOMIDE. [Suspect]
     Active Substance: TERIFLUNOMIDE
     Dosage: 7 MG, Q3D
     Route: 048
     Dates: start: 20181206
  10. NEURONTIN [Concomitant]
     Active Substance: GABAPENTIN
     Indication: MULTIPLE SCLEROSIS
     Dosage: UNK
     Dates: start: 20100615
  11. BACLOFEN. [Concomitant]
     Active Substance: BACLOFEN
  12. TERIFLUNOMIDE. [Suspect]
     Active Substance: TERIFLUNOMIDE
     Indication: MULTIPLE SCLEROSIS
     Dosage: 7 MG,QOD
     Route: 048
     Dates: start: 20140615

REACTIONS (29)
  - Burning sensation [Not Recovered/Not Resolved]
  - Muscular weakness [Unknown]
  - Treatment noncompliance [Unknown]
  - Nausea [Unknown]
  - Product dose omission [Unknown]
  - Inappropriate schedule of product administration [Unknown]
  - Erythema [Recovered/Resolved]
  - Dizziness [Recovered/Resolved]
  - Malaise [Unknown]
  - Back pain [Unknown]
  - Rash pruritic [Recovering/Resolving]
  - Weight decreased [Recovering/Resolving]
  - Procedural complication [Unknown]
  - Hepatic cyst [Not Recovered/Not Resolved]
  - Acne [Not Recovered/Not Resolved]
  - Pruritus [Recovered/Resolved]
  - Condition aggravated [Unknown]
  - Abdominal discomfort [Unknown]
  - Musculoskeletal pain [Recovered/Resolved]
  - Skin burning sensation [Not Recovered/Not Resolved]
  - Diarrhoea [Unknown]
  - Multiple sclerosis relapse [Unknown]
  - Rash [Not Recovered/Not Resolved]
  - Gait disturbance [Not Recovered/Not Resolved]
  - Abdominal pain upper [Unknown]
  - Unevaluable event [Unknown]
  - Dermatitis allergic [Unknown]
  - Cataract [Unknown]
  - Myalgia [Recovered/Resolved]

NARRATIVE: CASE EVENT DATE: 20140708
